FAERS Safety Report 10012867 (Version 1)
Quarter: 2014Q1

REPORT INFORMATION
  Report Type: Spontaneous
  Country: US (occurrence: US)
  Receive Date: 20140314
  Receipt Date: 20140314
  Transmission Date: 20141002
  Serious: Yes (Other)
  Sender: FDA-Public Use
  Company Number: US-ACTAVIS-2014-04342

PATIENT
  Age: 79 Year
  Sex: Male

DRUGS (6)
  1. CARBIDOPA/LEVODOPA (AELLC) [Suspect]
     Indication: PARKINSON^S DISEASE
     Dosage: 2.5 TABLET, Q3H, FIVE TIMES DAILY, PLUS EXTRA DOSES (SELF MEDICATION)
     Route: 065
  2. CARBIDOPA/LEVODOPA (AELLC) [Suspect]
     Indication: INTENTIONAL OVERDOSE
     Dosage: 1.5 UNK, UNK
     Route: 065
  3. CARBIDOPA/LEVODOPA (AELLC) [Suspect]
     Dosage: 2 TABLETS, Q2H, MAXIMUM 6 DOSES
  4. CARBIDOPA/LEVODOPA (AELLC) [Suspect]
     Dosage: 1.5 TABLET, Q2H, MAXIMUL 5 OR 6 DOSES
     Route: 065
  5. RASAGILINE [Concomitant]
     Indication: PARKINSON^S DISEASE
     Dosage: 1 MG, DAILY
     Route: 065
  6. APOMORPHINE [Concomitant]
     Indication: PARKINSON^S DISEASE
     Dosage: UP TO 5 TIMES A DAY, AS NEEDED
     Route: 051

REACTIONS (2)
  - Dopamine dysregulation syndrome [Recovered/Resolved]
  - Intentional overdose [Recovered/Resolved]
